FAERS Safety Report 4822759-1 (Version None)
Quarter: 2005Q4

REPORT INFORMATION
  Report Type: 
  Country: None (occurrence: None)
  Receive Date: 20051104
  Receipt Date: 20051020
  Transmission Date: 20060501
  Serious: Yes (Hospitalization)
  Sender: FDA-Public Use
  Company Number: 8012883

PATIENT
  Age: 18 Year
  Sex: Female
  Weight: 60 kg

DRUGS (5)
  1. KEPPRA [Suspect]
     Indication: EPILEPSY
     Dosage: 1.5 G /D PO
     Route: 048
     Dates: start: 20050801
  2. KEPPRA [Suspect]
     Indication: EPILEPSY
  3. PHENHYDAN [Concomitant]
  4. FRISIUM [Concomitant]
  5. ERGENYL [Concomitant]

REACTIONS (2)
  - LEUKOPENIA [None]
  - NEUTROPENIA [None]
